FAERS Safety Report 23266865 (Version 3)
Quarter: 2024Q2

REPORT INFORMATION
  Report Type: Spontaneous
  Country: US (occurrence: US)
  Receive Date: 20231206
  Receipt Date: 20240607
  Transmission Date: 20240716
  Serious: No
  Sender: FDA-Public Use
  Company Number: US-SA-SAC20231204000432

PATIENT
  Age: 52 Year
  Sex: Female

DRUGS (1)
  1. REZUROCK [Suspect]
     Active Substance: BELUMOSUDIL
     Indication: Chronic graft versus host disease
     Dosage: 200 MG, BID
     Route: 048
     Dates: start: 20230119

REACTIONS (12)
  - Weight decreased [Unknown]
  - Depression [Unknown]
  - Balance disorder [Unknown]
  - Chills [Unknown]
  - Insomnia [Unknown]
  - Rhinorrhoea [Unknown]
  - Bloody discharge [Unknown]
  - Oropharyngeal pain [Unknown]
  - Chest discomfort [Unknown]
  - Hypersensitivity [Unknown]
  - Cough [Unknown]
  - Inappropriate schedule of product administration [Unknown]

NARRATIVE: CASE EVENT DATE: 20230101
